FAERS Safety Report 6647748-6 (Version None)
Quarter: 2010Q1

REPORT INFORMATION
  Report Type: 
  Country: None (occurrence: None)
  Receive Date: 20100318
  Receipt Date: 20100305
  Transmission Date: 20100710
  Serious: Yes (Other)
  Sender: FDA-Public Use
  Company Number: 008360

PATIENT
  Sex: Female
  Weight: 55 kg

DRUGS (1)
  1. ISOKET (ISOKET) [Suspect]
     Dosage: (ISOKET 10 MG, 30 TABLETS OVER A PERIOD OP SEVERAL HOURS, TOTAL AMOUNT 300MG)
     Dates: start: 20100305

REACTIONS (1)
  - SUICIDE ATTEMPT [None]
